FAERS Safety Report 8949426 (Version 3)
Quarter: 2013Q1

REPORT INFORMATION
  Report Type: Spontaneous
  Country: GB (occurrence: GB)
  Receive Date: 20121206
  Receipt Date: 20130314
  Transmission Date: 20140127
  Serious: Yes (Other)
  Sender: FDA-Public Use
  Company Number: GB-MERCK-1212GBR001290

PATIENT
  Sex: Male

DRUGS (2)
  1. JANUVIA [Suspect]
     Dosage: UNK
     Route: 048
     Dates: start: 20121119, end: 20121202
  2. NAPROXEN [Concomitant]
     Indication: BACK PAIN

REACTIONS (5)
  - Loss of consciousness [Unknown]
  - Drug ineffective [Unknown]
  - Blood glucose abnormal [Unknown]
  - Heart rate increased [Unknown]
  - Blood glucose increased [Unknown]
